FAERS Safety Report 7766148-9 (Version None)
Quarter: 2011Q3

REPORT INFORMATION
  Report Type: 
  Country: None (occurrence: None)
  Receive Date: 20110921
  Receipt Date: 20110916
  Transmission Date: 20111222
  Serious: Yes (Hospitalization)
  Sender: FDA-Public Use
  Company Number: JP-MERCK-1109USA00263

PATIENT
  Age: 81 Year
  Sex: Male

DRUGS (9)
  1. PROLMON [Concomitant]
     Indication: CARDIAC FAILURE
     Route: 048
  2. SEROQUEL [Concomitant]
     Indication: DEMENTIA
     Dosage: DAILY DOSAGE UNKNOWN
     Route: 048
  3. ALDACTONE [Concomitant]
     Indication: CARDIAC FAILURE
     Route: 048
  4. LASIX [Concomitant]
     Indication: CARDIAC FAILURE
     Route: 048
  5. LEOVACTON [Concomitant]
     Indication: HEPATIC CIRRHOSIS
     Route: 048
  6. LACTULOSE [Concomitant]
     Indication: HEPATIC CIRRHOSIS
     Route: 048
  7. ANAFRANIL [Concomitant]
     Indication: DEMENTIA
     Route: 048
  8. STROMECTOL [Suspect]
     Indication: ACARODERMATITIS
     Dosage: DIVIDED DOSE FREQUENCY U
     Route: 048
     Dates: start: 20110825, end: 20110825
  9. ALLEGRA [Suspect]
     Indication: PRURITUS
     Route: 048
     Dates: start: 20110824, end: 20110829

REACTIONS (1)
  - HEPATIC ENCEPHALOPATHY [None]
